FAERS Safety Report 9301936 (Version 2)
Quarter: 2014Q2

REPORT INFORMATION
  Report Type: Spontaneous
  Country: PL (occurrence: PL)
  Receive Date: 20130521
  Receipt Date: 20140422
  Transmission Date: 20141212
  Serious: Yes (Death)
  Sender: FDA-Public Use
  Company Number: PL-WATSON-2013-08934

PATIENT
  Age: 73 Year
  Sex: Female
  Weight: 62 kg

DRUGS (2)
  1. CARBOPLATIN (UNKNOWN) [Suspect]
     Indication: LUNG NEOPLASM MALIGNANT
     Dosage: 301.36 MG, UNKNOWN
     Route: 042
     Dates: start: 20130219, end: 20130219
  2. VINORELBINE (UNKNOWN) [Concomitant]
     Indication: LUNG CANCER METASTATIC
     Dosage: 51.13 MG, UNKNOWN
     Route: 042
     Dates: start: 20130219, end: 20130226

REACTIONS (1)
  - Febrile neutropenia [Fatal]
